FAERS Safety Report 18066291 (Version 5)
Quarter: 2021Q2

REPORT INFORMATION
  Report Type: Spontaneous
  Country: US (occurrence: US)
  Receive Date: 20200724
  Receipt Date: 20210505
  Transmission Date: 20210717
  Serious: Yes (Hospitalization)
  Sender: FDA-Public Use
  Company Number: US-EMD SERONO-9175178

PATIENT
  Age: 55 Year
  Sex: Male
  Weight: 122 kg

DRUGS (5)
  1. MAVENCLAD [Suspect]
     Active Substance: CLADRIBINE
     Indication: RELAPSING-REMITTING MULTIPLE SCLEROSIS
     Dosage: FIRST YEAR FIRST MONTH THERAPY: 20 MG PER DAY
     Route: 048
     Dates: start: 20200616, end: 20200620
  2. NORVASC [Concomitant]
     Active Substance: AMLODIPINE BESYLATE
     Indication: PRODUCT USED FOR UNKNOWN INDICATION
     Route: 048
  3. FLOMAX [Concomitant]
     Active Substance: TAMSULOSIN HYDROCHLORIDE
     Indication: PRODUCT USED FOR UNKNOWN INDICATION
     Dosage: AT NIGHT
  4. MYCOSTATIN [Concomitant]
     Active Substance: NYSTATIN
     Indication: PRODUCT USED FOR UNKNOWN INDICATION
     Dosage: TOPICAL
     Route: 061
  5. MAVENCLAD [Suspect]
     Active Substance: CLADRIBINE
     Dosage: FIRST YEAR SECOND MONTH THERAPY: THE STARTED TO TAKE AND THEN STOPPED AS HE WAS IN HOSPITAL
     Route: 048
     Dates: start: 20200719, end: 20200723

REACTIONS (5)
  - Multiple sclerosis [Not Recovered/Not Resolved]
  - Respiratory rate decreased [Unknown]
  - Cystitis [Recovered/Resolved]
  - COVID-19 [Unknown]
  - Early satiety [Unknown]

NARRATIVE: CASE EVENT DATE: 202007
